FAERS Safety Report 5155833-3 (Version None)
Quarter: 2006Q4

REPORT INFORMATION
  Report Type: 
  Country: None (occurrence: None)
  Receive Date: 20061120
  Receipt Date: 20061120
  Transmission Date: 20070319
  Serious: Yes (Hospitalization)
  Sender: FDA-Public Use
  Company Number: None

PATIENT
  Age: 83 Year
  Sex: Female

DRUGS (2)
  1. AUGMENTIN '125' [Suspect]
     Dosage: 875 MG BID
  2. HYDROCHLOROTHIAZIDE [Concomitant]

REACTIONS (1)
  - STAPHYLOCOCCAL SCALDED SKIN SYNDROME [None]
